FAERS Safety Report 5328303-7 (Version None)
Quarter: 2007Q2

REPORT INFORMATION
  Report Type: 
  Country: None (occurrence: None)
  Receive Date: 20070518
  Receipt Date: 20070508
  Transmission Date: 20071010
  Serious: Yes (Hospitalization)
  Sender: FDA-Public Use
  Company Number: DE-JNJFOC-20070502275

PATIENT
  Age: 52 Year
  Sex: Male
  Weight: 106 kg

DRUGS (4)
  1. REMICADE [Suspect]
     Indication: PSORIATIC ARTHROPATHY
     Route: 042
  2. PREDNISOLONE [Concomitant]
     Indication: PSORIATIC ARTHROPATHY
  3. ARAVA [Concomitant]
     Indication: PSORIATIC ARTHROPATHY
  4. ALENDRONIC ACID [Concomitant]
     Indication: OSTEOPOROSIS

REACTIONS (1)
  - RENAL CELL CARCINOMA STAGE UNSPECIFIED [None]
